FAERS Safety Report 7680246-X (Version None)
Quarter: 2011Q3

REPORT INFORMATION
  Report Type: 
  Country: None (occurrence: None)
  Receive Date: 20110811
  Receipt Date: 20110811
  Transmission Date: 20111222
  Serious: Yes (Hospitalization)
  Sender: FDA-Public Use
  Company Number: None

PATIENT
  Sex: Female

DRUGS (2)
  1. PEGASYS [Suspect]
     Dosage: 150MCG/400MCG QW/BID SQ/PO
     Route: 048
     Dates: start: 20110720, end: 20110803
  2. INCIVEK [Suspect]
     Dosage: 750MG TID PO
     Route: 048
     Dates: start: 20110720, end: 20110803

REACTIONS (2)
  - COGNITIVE DISORDER [None]
  - HEPATIC FAILURE [None]
